FAERS Safety Report 4927543-6 (Version None)
Quarter: 2006Q1

REPORT INFORMATION
  Report Type: 
  Country: None (occurrence: None)
  Receive Date: 20060228
  Receipt Date: 20050908
  Transmission Date: 20060701
  Serious: Yes (Hospitalization)
  Sender: FDA-Public Use
  Company Number: US-MERCK-0509USA01061

PATIENT
  Age: 68 Year
  Sex: Female
  Weight: 61 kg

DRUGS (2)
  1. VIOXX [Suspect]
     Indication: RHEUMATOID ARTHRITIS
     Route: 048
     Dates: start: 19991112, end: 20010701
  2. BAYCOL [Concomitant]
     Route: 065

REACTIONS (14)
  - ACUTE PULMONARY OEDEMA [None]
  - ARTERIOSCLEROSIS CORONARY ARTERY [None]
  - ARTHRALGIA [None]
  - ATELECTASIS [None]
  - ATRIAL FIBRILLATION [None]
  - CEREBRAL ATROPHY [None]
  - CEREBRAL ISCHAEMIA [None]
  - CORONARY ARTERY DISEASE [None]
  - ELECTROCARDIOGRAM ST SEGMENT DEPRESSION [None]
  - HEADACHE [None]
  - MITRAL VALVE INCOMPETENCE [None]
  - MYOCARDIAL INFARCTION [None]
  - SINUSITIS [None]
  - VENTRICULAR HYPERTROPHY [None]
